FAERS Safety Report 15209490 (Version 1)
Quarter: 2018Q3

REPORT INFORMATION
  Report Type: Spontaneous
  Country: NL (occurrence: NL)
  Receive Date: 20180727
  Receipt Date: 20180727
  Transmission Date: 20181010
  Serious: Yes (Hospitalization, Disabling)
  Sender: FDA-Public Use
  Company Number: NL-TEVA-2018-NL-930586

PATIENT
  Age: 86 Year
  Sex: Female

DRUGS (7)
  1. RIVAROXABAN [Concomitant]
     Active Substance: RIVAROXABAN
     Dosage: 20 MILLIGRAM DAILY; 1X PER DAG TIJDENS AVONDETEN 20 MG INNEMEN
  2. ESOMEPRAZOL [Concomitant]
     Active Substance: ESOMEPRAZOLE
     Dosage: 40 MILLIGRAM DAILY; 1X PER DAG 40 MG INNEMEN. MET WATER INNEMEN; NIET KAUWEN
  3. AZATHIOPRINE. [Concomitant]
     Active Substance: AZATHIOPRINE
     Dosage: 3X PER DAG 50 MG INNEMEN. TIJDENS OF VLAK NA HET ETEN INNEMEN
  4. FUROSEMIDE. [Concomitant]
     Active Substance: FUROSEMIDE
     Dosage: 40 MILLIGRAM DAILY; 1X PER DAG 40 MG INNEMEN
  5. NIFEDIPINE. [Concomitant]
     Active Substance: NIFEDIPINE
     Dosage: 30 MILLIGRAM DAILY; 1X PER DAG 30 MG INNEMEN. HEEL DOORSLIKKEN
  6. AMOXICILLINE CAPSULE, 500 MG (MILLIGRAM) [Suspect]
     Active Substance: AMOXICILLIN
     Indication: RESPIRATORY TRACT INFECTION
     Dosage: 3X PER DAG 1 STUK.
     Dates: start: 20171205, end: 20171208
  7. ALENDRONINEZUUR [Concomitant]
     Active Substance: ALENDRONIC ACID
     Dosage: EENS PER WEEK 70 MG INNEMEN. OP VRIJDAG

REACTIONS (1)
  - Myasthenia gravis [Recovered/Resolved]

NARRATIVE: CASE EVENT DATE: 20171206
